FAERS Safety Report 15550038 (Version 1)
Quarter: 2018Q4

REPORT INFORMATION
  Report Type: Report from Study
  Country: US (occurrence: US)
  Receive Date: 20181025
  Receipt Date: 20181025
  Transmission Date: 20190205
  Serious: Yes (Hospitalization, Other)
  Sender: FDA-Public Use
  Company Number: US-MALLINCKRODT-T201804545

PATIENT
  Age: 55 Year
  Sex: Female

DRUGS (3)
  1. REPOSITORY CORTICOTROPIN INJECTION [Suspect]
     Active Substance: CORTICOTROPIN
     Dosage: 80 UNITS TWICE A MONTH (1ST AND 15TH)
     Route: 058
     Dates: start: 201712, end: 201801
  2. REPOSITORY CORTICOTROPIN INJECTION [Suspect]
     Active Substance: CORTICOTROPIN
     Indication: MULTIPLE SCLEROSIS
     Dosage: 80 UNITS TWICE A MONTH (1ST AND 15TH)
     Route: 058
     Dates: start: 201506, end: 201701
  3. COPAXONE [Suspect]
     Active Substance: GLATIRAMER ACETATE
     Indication: PRODUCT USED FOR UNKNOWN INDICATION
     Dosage: UNK
     Route: 065
     Dates: start: 20180621

REACTIONS (21)
  - Muscle spasms [Unknown]
  - Candida infection [Unknown]
  - Fall [Unknown]
  - Joint injury [Unknown]
  - Cardiomegaly [Unknown]
  - Immunodeficiency [Unknown]
  - Refraction disorder [Unknown]
  - Anxiety [Unknown]
  - Fluid retention [Unknown]
  - Anaphylactic reaction [Unknown]
  - Skin discolouration [Unknown]
  - Dyspnoea [Unknown]
  - Drug hypersensitivity [Unknown]
  - Hypotonia [Unknown]
  - Muscular weakness [Unknown]
  - Multiple sclerosis relapse [Not Recovered/Not Resolved]
  - Vision blurred [Unknown]
  - Headache [Unknown]
  - Cardiac aneurysm [Recovered/Resolved]
  - Heart valve incompetence [Recovering/Resolving]
  - Pain [Unknown]

NARRATIVE: CASE EVENT DATE: 20180621
